FAERS Safety Report 4326293-7 (Version None)
Quarter: 2004Q1

REPORT INFORMATION
  Report Type: 
  Country: None (occurrence: None)
  Receive Date: 20040324
  Receipt Date: 20040310
  Transmission Date: 20041129
  Serious: Yes (Hospitalization, Other)
  Sender: FDA-Public Use
  Company Number: USA040361645

PATIENT
  Age: 79 Year
  Sex: Female

DRUGS (3)
  1. HUMALOG-HUMAN INSULIN (RDNA):  75% LISPRO, 25% NPL (L [Suspect]
     Indication: BLOOD GLUCOSE DECREASED
     Dosage: 100 U DAY
  2. HUMALOG [Suspect]
     Indication: BLOOD GLUCOSE INCREASED
  3. LANTUS [Concomitant]

REACTIONS (4)
  - DEVICE FAILURE [None]
  - FALL [None]
  - HIP FRACTURE [None]
  - PHARMACEUTICAL PRODUCT COMPLAINT [None]
